FAERS Safety Report 5570035-4 (Version None)
Quarter: 2007Q4

REPORT INFORMATION
  Report Type: 
  Country: None (occurrence: None)
  Receive Date: 20071214
  Receipt Date: 20071128
  Transmission Date: 20080405
  Serious: Yes (Hospitalization)
  Sender: FDA-Public Use
  Company Number: S07-FRA-06241-01

PATIENT
  Age: 80 Year
  Sex: Female

DRUGS (10)
  1. CITALOPRAM HYDROBROMIDE [Suspect]
     Indication: DEPRESSION
     Dates: start: 20070401, end: 20070412
  2. PLAVIX [Concomitant]
  3. ASPIRIN [Concomitant]
  4. ACTAND (CANDESARTAN CILEXETIL) [Concomitant]
  5. ALDACTONE [Concomitant]
  6. DIGOXIN [Concomitant]
  7. LASIX [Concomitant]
  8. CRESTOR [Concomitant]
  9. INEXIUM [Concomitant]
  10. LEVOTHYROXINE SODIUM [Concomitant]

REACTIONS (5)
  - CARDIAC VENTRICULAR DISORDER [None]
  - CHOLESTASIS [None]
  - CONDITION AGGRAVATED [None]
  - CYTOLYTIC HEPATITIS [None]
  - EJECTION FRACTION DECREASED [None]
